FAERS Safety Report 7056309-9 (Version None)
Quarter: 2010Q4

REPORT INFORMATION
  Report Type: 
  Country: None (occurrence: None)
  Receive Date: 20101021
  Receipt Date: 20101011
  Transmission Date: 20110411
  Serious: Yes (Other)
  Sender: FDA-Public Use
  Company Number: AU-ELI_LILLY_AND_COMPANY-AU201008002035

PATIENT
  Sex: Female

DRUGS (9)
  1. FORTEO [Suspect]
     Indication: OSTEOPOROSIS
     Dosage: 20 UG, DAILY (1/D)
     Route: 058
     Dates: start: 20100517, end: 20100517
  2. FORTEO [Suspect]
     Dosage: 20 UG, DAILY (1/D)
     Route: 058
     Dates: start: 20100802, end: 20100802
  3. CALTRATE [Concomitant]
     Indication: OSTEOPOROSIS
     Dosage: 600 MG, DAILY (1/D)
     Route: 048
  4. KEFLEX [Concomitant]
     Dosage: 250 MG, DAILY (1/D)
     Route: 065
  5. WARFARIN [Concomitant]
     Indication: PULMONARY EMBOLISM
     Dosage: 4 MG, UNKNOWN
     Route: 065
  6. NULYTELY [Concomitant]
     Indication: CONSTIPATION
     Dosage: UNK, UNKNOWN
     Route: 065
  7. NEXIUM [Concomitant]
     Indication: GASTROOESOPHAGEAL REFLUX DISEASE
     Dosage: 20 MG, UNKNOWN
     Route: 065
  8. PHYSEPTONE [Concomitant]
     Indication: PAIN
     Dosage: 10 MG, 3/D
     Route: 065
  9. VALIUM [Concomitant]
     Indication: PAIN
     Dosage: 2 MG, 3/D
     Route: 065

REACTIONS (10)
  - ABDOMINAL PAIN [None]
  - BACK PAIN [None]
  - DYSGEUSIA [None]
  - DYSPHAGIA [None]
  - HEADACHE [None]
  - NAUSEA [None]
  - PAIN IN JAW [None]
  - PHARYNGEAL OEDEMA [None]
  - RASH [None]
  - VERTIGO [None]
